FAERS Safety Report 14783496 (Version 2)
Quarter: 2018Q2

REPORT INFORMATION
  Report Type: Not Available
  Country: US (occurrence: US)
  Receive Date: 20180420
  Receipt Date: 20180608
  Transmission Date: 20180711
  Serious: No
  Sender: FDA-Public Use
  Company Number: US-NEUROCRINE BIOSCIENCES INC.-2018NBI00973

PATIENT
  Sex: Male

DRUGS (18)
  1. ESCITALOPRAM [Concomitant]
     Active Substance: ESCITALOPRAM OXALATE
     Dates: start: 20110601
  2. VOLTAREN [Concomitant]
     Active Substance: DICLOFENAC SODIUM
     Dosage: AS NEEDED
     Dates: start: 20110601
  3. INGREZZA [Suspect]
     Active Substance: VALBENAZINE
     Route: 048
     Dates: start: 201708, end: 20170922
  4. INGREZZA [Suspect]
     Active Substance: VALBENAZINE
     Route: 048
     Dates: start: 20180312, end: 20180314
  5. ATENOLOL. [Concomitant]
     Active Substance: ATENOLOL
     Dates: start: 20110601
  6. PERCOCET [Concomitant]
     Active Substance: ACETAMINOPHEN\OXYCODONE HYDROCHLORIDE
     Dosage: 15/650 MG AS NEEDED (BID)
     Dates: start: 20110601
  7. INGREZZA [Suspect]
     Active Substance: VALBENAZINE
     Indication: TARDIVE DYSKINESIA
     Route: 048
     Dates: start: 201708, end: 201708
  8. TRAZODONE [Concomitant]
     Active Substance: TRAZODONE HYDROCHLORIDE
     Dates: start: 20110601
  9. ACTIFED [Concomitant]
     Active Substance: PSEUDOEPHEDRINE HYDROCHLORIDE\TRIPROLIDINE HYDROCHLORIDE
     Dosage: AS NEEDED
     Dates: start: 20110601
  10. GLUCOSAMINE/CHONDROITIN [Concomitant]
     Dosage: 150/200 MG QDAY
     Dates: start: 20110601
  11. PANTOPRAZOLE [Concomitant]
     Active Substance: PANTOPRAZOLE
     Dates: start: 20170228
  12. COQ10 [Concomitant]
     Active Substance: UBIDECARENONE
     Dates: start: 20110601
  13. FIBER [Concomitant]
     Active Substance: PSYLLIUM HUSK
     Dates: start: 20170228
  14. RANITIDINE. [Concomitant]
     Active Substance: RANITIDINE
     Dosage: AS NEEDED
     Dates: start: 20170228
  15. ASPIRIN. [Concomitant]
     Active Substance: ASPIRIN
     Dates: start: 20110601
  16. BUSPIRONE [Concomitant]
     Active Substance: BUSPIRONE HYDROCHLORIDE
     Dates: start: 20170228
  17. PLAVIX [Concomitant]
     Active Substance: CLOPIDOGREL BISULFATE
     Dosage: 40 MG MWF
     Dates: start: 20110601
  18. GABAPENTIN. [Concomitant]
     Active Substance: GABAPENTIN
     Dates: start: 20170228

REACTIONS (3)
  - Somnolence [Recovered/Resolved]
  - Asthenia [Recovered/Resolved]
  - Feeling abnormal [Recovered/Resolved]
